FAERS Safety Report 6291860-0 (Version None)
Quarter: 2009Q3

REPORT INFORMATION
  Report Type: 
  Country: None (occurrence: None)
  Receive Date: 20090730
  Receipt Date: 20090717
  Transmission Date: 20100115
  Serious: Yes (Other)
  Sender: FDA-Public Use
  Company Number: ES-GENENTECH-287360

PATIENT
  Age: 60 Year
  Sex: Male

DRUGS (1)
  1. LUCENTIS [Suspect]
     Indication: MACULAR DEGENERATION
     Route: 031

REACTIONS (5)
  - HEPATIC FAILURE [None]
  - HEPATITIS ACUTE [None]
  - HEPATOTOXICITY [None]
  - MALAISE [None]
  - TRANSAMINASES INCREASED [None]
